FAERS Safety Report 18495247 (Version 1)
Quarter: 2020Q4

REPORT INFORMATION
  Report Type: Spontaneous
  Country: US (occurrence: US)
  Receive Date: 20201111
  Receipt Date: 20201111
  Transmission Date: 20210114
  Serious: Yes (Other)
  Sender: FDA-Public Use
  Company Number: None

PATIENT
  Age: 58 Year
  Sex: Male
  Weight: 74.25 kg

DRUGS (7)
  1. ASPIRIN. [Concomitant]
     Active Substance: ASPIRIN
  2. METPROLOL [Concomitant]
     Active Substance: METOPROLOL
  3. MULTIVITAMIN [Concomitant]
     Active Substance: VITAMINS
  4. CIALIS [Concomitant]
     Active Substance: TADALAFIL
  5. VITAMIN D [Concomitant]
     Active Substance: VITAMIN D NOS
  6. SERTRALINE [Suspect]
     Active Substance: SERTRALINE HYDROCHLORIDE
     Indication: DEPRESSION
     Dosage: ?          QUANTITY:2 TABLET(S);?
     Route: 048
     Dates: start: 20201024, end: 20201107
  7. LOSARTAN. [Concomitant]
     Active Substance: LOSARTAN

REACTIONS (6)
  - Depressed mood [None]
  - Fatigue [None]
  - Dyspnoea [None]
  - Feeling abnormal [None]
  - Chest discomfort [None]
  - Product substitution issue [None]

NARRATIVE: CASE EVENT DATE: 20201107
